FAERS Safety Report 13104583 (Version 1)
Quarter: 2017Q1

REPORT INFORMATION
  Report Type: Spontaneous
  Country: US (occurrence: US)
  Receive Date: 20170110
  Receipt Date: 20170110
  Transmission Date: 20170428
  Serious: Yes (Hospitalization)
  Sender: FDA-Public Use
  Company Number: None

PATIENT
  Age: 55 Year
  Sex: Female
  Weight: 83.25 kg

DRUGS (4)
  1. RUXOLITINIB [Suspect]
     Active Substance: RUXOLITINIB
     Indication: ACUTE LYMPHOCYTIC LEUKAEMIA
     Route: 048
     Dates: start: 20160524, end: 20161224
  2. METHOCARBAMOL. [Concomitant]
     Active Substance: METHOCARBAMOL
  3. TRAMADOL. [Concomitant]
     Active Substance: TRAMADOL
  4. RUXOLITINIB [Suspect]
     Active Substance: RUXOLITINIB
     Indication: ACUTE LYMPHOCYTIC LEUKAEMIA
     Route: 048
     Dates: start: 20161227

REACTIONS (2)
  - Arthritis [None]
  - Osteonecrosis [None]

NARRATIVE: CASE EVENT DATE: 20161224
